FAERS Safety Report 7269349-1 (Version None)
Quarter: 2011Q1

REPORT INFORMATION
  Report Type: 
  Country: None (occurrence: None)
  Receive Date: 20110202
  Receipt Date: 20110119
  Transmission Date: 20110831
  Serious: Yes (Hospitalization)
  Sender: FDA-Public Use
  Company Number: NL-CELGENEUS-114-20785-10121456

PATIENT
  Sex: Male
  Weight: 71 kg

DRUGS (8)
  1. MOVICOLON [Concomitant]
     Indication: PROPHYLAXIS
     Route: 048
     Dates: start: 20101027
  2. THALIDOMIDE [Suspect]
     Indication: MULTIPLE MYELOMA
     Route: 048
     Dates: start: 20101206, end: 20101212
  3. PREDNISONE [Suspect]
     Indication: MULTIPLE MYELOMA
     Route: 048
     Dates: start: 20101206, end: 20101209
  4. THALIDOMIDE [Suspect]
     Route: 048
  5. MELPHALAN [Suspect]
     Indication: MULTIPLE MYELOMA
     Route: 048
     Dates: start: 20101206, end: 20101209
  6. ASCAL [Concomitant]
     Indication: PROPHYLAXIS
     Route: 048
     Dates: start: 20101206
  7. PANTAZOL [Concomitant]
     Indication: PROPHYLAXIS
     Route: 048
     Dates: start: 20101102
  8. PCM [Concomitant]
     Indication: PAIN
     Route: 048
     Dates: start: 20101027

REACTIONS (1)
  - SYNCOPE [None]
